FAERS Safety Report 16739130 (Version 13)
Quarter: 2020Q1

REPORT INFORMATION
  Report Type: Spontaneous
  Country: JP (occurrence: JP)
  Receive Date: 20190826
  Receipt Date: 20200226
  Transmission Date: 20200409
  Serious: Yes (Hospitalization)
  Sender: FDA-Public Use
  Company Number: JP-ABBVIE-19K-087-2899192-00

PATIENT
  Age: 73 Year
  Sex: Male

DRUGS (3)
  1. DUODOPA [Suspect]
     Active Substance: CARBIDOPA\LEVODOPA
     Indication: PARKINSON^S DISEASE
     Route: 050
     Dates: start: 201906, end: 201906
  2. DUODOPA [Suspect]
     Active Substance: CARBIDOPA\LEVODOPA
     Route: 050
     Dates: start: 20190627, end: 2019
  3. DUODOPA [Suspect]
     Active Substance: CARBIDOPA\LEVODOPA
     Route: 050
     Dates: start: 2019, end: 20191202

REACTIONS (11)
  - Pneumonia aspiration [Recovered/Resolved]
  - Pneumonia [Unknown]
  - Wrong technique in device usage process [Unknown]
  - Pneumonia aspiration [Unknown]
  - Pyrexia [Not Recovered/Not Resolved]
  - Incorrect route of product administration [Recovered/Resolved]
  - Gastric fistula [Unknown]
  - Intentional medical device removal by patient [Unknown]
  - Dementia [Unknown]
  - Malaise [Unknown]
  - Dermatitis contact [Unknown]

NARRATIVE: CASE EVENT DATE: 2019
